FAERS Safety Report 4694931-5 (Version None)
Quarter: 2005Q2

REPORT INFORMATION
  Report Type: 
  Country: None (occurrence: None)
  Receive Date: 20050620
  Receipt Date: 20050608
  Transmission Date: 20051028
  Serious: Yes (Hospitalization)
  Sender: FDA-Public Use
  Company Number: GXKR2005CR01196

PATIENT
  Age: 38 Year
  Sex: Female
  Weight: 63 kg

DRUGS (2)
  1. CURAM         (AMOXICILIN, CLAVULANATE) [Suspect]
     Indication: PHARYNGITIS
     Dosage: 2 TABLETS, ORAL
     Route: 048
     Dates: start: 20050607, end: 20050608
  2. CLARIGRIP [Concomitant]

REACTIONS (4)
  - ANXIETY [None]
  - CONVULSION [None]
  - DYSPNOEA [None]
  - PARAESTHESIA [None]
